FAERS Safety Report 19453590 (Version 2)
Quarter: 2021Q3

REPORT INFORMATION
  Report Type: Spontaneous
  Country: JP (occurrence: JP)
  Receive Date: 20210623
  Receipt Date: 20210712
  Transmission Date: 20211014
  Serious: Yes (Death, Other)
  Sender: FDA-Public Use
  Company Number: JP-SA-2021SA155845

PATIENT
  Age: 25 Month
  Sex: Male

DRUGS (6)
  1. GEMCITABINE HYDROCHLORIDE. [Suspect]
     Active Substance: GEMCITABINE HYDROCHLORIDE
     Indication: METASTASES TO LUNG
     Dosage: 1800 MG/M2
     Route: 065
  2. GEMCITABINE HYDROCHLORIDE. [Suspect]
     Active Substance: GEMCITABINE HYDROCHLORIDE
     Indication: METASTASES TO LYMPH NODES
  3. DOCETAXEL. [Suspect]
     Active Substance: DOCETAXEL
     Indication: RHABDOID TUMOUR OF THE KIDNEY
  4. DOCETAXEL. [Suspect]
     Active Substance: DOCETAXEL
     Indication: METASTASES TO LUNG
  5. DOCETAXEL. [Suspect]
     Active Substance: DOCETAXEL
     Indication: METASTASES TO LYMPH NODES
     Dosage: 100 MG/M2
     Route: 065
  6. GEMCITABINE HYDROCHLORIDE. [Suspect]
     Active Substance: GEMCITABINE HYDROCHLORIDE
     Indication: RHABDOID TUMOUR OF THE KIDNEY

REACTIONS (8)
  - Therapy partial responder [Unknown]
  - Pneumonia [Unknown]
  - Face oedema [Unknown]
  - Haematotoxicity [Unknown]
  - Condition aggravated [Unknown]
  - Pleural effusion [Fatal]
  - Pulmonary oedema [Fatal]
  - Acute respiratory failure [Fatal]
